FAERS Safety Report 8432279-3 (Version None)
Quarter: 2012Q2

REPORT INFORMATION
  Report Type: 
  Country: None (occurrence: None)
  Receive Date: 20120613
  Receipt Date: 20120607
  Transmission Date: 20120825
  Serious: Yes (Hospitalization, Other)
  Sender: FDA-Public Use
  Company Number: PHHY2011JP110036

PATIENT
  Sex: Female
  Weight: 47 kg

DRUGS (17)
  1. FURTULON [Concomitant]
     Indication: METASTASES TO BONE
     Dosage: 400 MG, UNK
     Route: 048
     Dates: start: 20030623
  2. LYRICA [Concomitant]
     Indication: NEURALGIA
     Dosage: 150 MG, UNK
     Route: 048
     Dates: start: 20110411
  3. MEDROXYPROGESTERONE ACETATE [Concomitant]
     Indication: METASTASES TO BONE
     Dosage: 400 MG, UNK
     Route: 048
     Dates: start: 20030623
  4. CLARITHROMYCIN [Concomitant]
     Indication: OSTEONECROSIS OF JAW
     Dosage: 400 MG, UNK
     Route: 048
     Dates: start: 20110804
  5. ARIMIDEX [Concomitant]
     Route: 048
     Dates: start: 20020209, end: 20030317
  6. BISPHONAL [Suspect]
     Indication: METASTASES TO BONE
     Route: 042
     Dates: start: 20030317
  7. MARZULENE S [Concomitant]
     Indication: GASTRITIS
     Dosage: 1.34 MG, UNK
     Route: 065
     Dates: start: 20030120
  8. ZOMETA [Suspect]
     Indication: METASTASES TO BONE
     Dosage: 4 MG (PER ADMINISTRATION)
     Route: 041
     Dates: start: 20060731, end: 20100801
  9. ZOMETA [Suspect]
     Dosage: 4 MG (PER ADMINISTRATION)
     Route: 041
     Dates: start: 20101206, end: 20110725
  10. ZOMETA [Suspect]
     Dosage: 4 MG (PER ADMINISTRATION)
     Route: 041
     Dates: start: 20111024
  11. ADALAT [Concomitant]
     Indication: HYPERTENSION
     Dosage: 40 MG, UNK
     Route: 048
     Dates: start: 20021225
  12. DEPAS [Concomitant]
     Indication: ANXIETY DISORDER
     Dosage: 1 MG, UNK
     Route: 048
     Dates: start: 20030120
  13. RADIOTHERAPY [Concomitant]
     Dates: start: 20020604
  14. AREDIA [Suspect]
     Indication: METASTASES TO BONE
     Route: 041
     Dates: start: 20020531, end: 20030317
  15. NOLVADEX [Concomitant]
     Route: 048
  16. LOXONIN [Concomitant]
     Indication: CANCER PAIN
     Dosage: 120 MG, UNK
     Route: 048
     Dates: start: 20030120
  17. AROMASIN [Concomitant]
     Route: 048
     Dates: start: 20030317

REACTIONS (7)
  - FALL [None]
  - METASTASES TO LUNG [None]
  - INFECTION [None]
  - NEOPLASM PROGRESSION [None]
  - NEOPLASM MALIGNANT [None]
  - CONTUSION [None]
  - ATYPICAL FEMUR FRACTURE [None]
